FAERS Safety Report 9706852 (Version 7)
Quarter: 2018Q1

REPORT INFORMATION
  Report Type: Spontaneous
  Country: US (occurrence: US)
  Receive Date: 20131125
  Receipt Date: 20180112
  Transmission Date: 20180509
  Serious: Yes (Death, Hospitalization, Other)
  Sender: FDA-Public Use
  Company Number: US-009507513-1311USA007326

PATIENT
  Sex: Female

DRUGS (6)
  1. FOSAMAX [Suspect]
     Active Substance: ALENDRONATE SODIUM
     Indication: OSTEOPOROSIS
     Dosage: 70 MG, QW
     Route: 048
     Dates: start: 2000, end: 20110831
  2. ALENDRONATE SODIUM. [Suspect]
     Active Substance: ALENDRONATE SODIUM
     Indication: OSTEOPOROSIS
     Dosage: 70 MG, QW
     Route: 048
     Dates: start: 2008, end: 201108
  3. CHOLECALCIFEROL [Concomitant]
     Active Substance: CHOLECALCIFEROL
     Indication: PRODUCT USED FOR UNKNOWN INDICATION
     Dosage: 600 MG, UNK
     Route: 048
     Dates: start: 1980
  4. ALENDRONATE SODIUM. [Suspect]
     Active Substance: ALENDRONATE SODIUM
     Indication: OSTEOPOROSIS
     Dosage: 70 MG, UNK
     Route: 048
     Dates: start: 20110118, end: 201108
  5. CALCIUM (UNSPECIFIED) [Concomitant]
     Active Substance: CALCIUM
     Indication: PRODUCT USED FOR UNKNOWN INDICATION
     Route: 048
  6. FLAXSEED [Concomitant]
     Active Substance: FLAX SEED
     Indication: PRODUCT USED FOR UNKNOWN INDICATION
     Dosage: 800 IU, UNK
     Route: 048
     Dates: start: 1980

REACTIONS (27)
  - Muscle strain [Unknown]
  - Hyperlipidaemia [Unknown]
  - Brain herniation [Fatal]
  - Pulmonary embolism [Unknown]
  - Hypertension [Unknown]
  - Pyrexia [Recovered/Resolved]
  - Fall [Unknown]
  - Femur fracture [Recovering/Resolving]
  - Arterial haemorrhage [Unknown]
  - Ocular hyperaemia [Not Recovered/Not Resolved]
  - Thalamus haemorrhage [Fatal]
  - Brain death [Fatal]
  - Dry eye [Not Recovered/Not Resolved]
  - Urinary tract infection [Unknown]
  - Haematoma [Recovering/Resolving]
  - Deep vein thrombosis [Unknown]
  - Osteonecrosis [Unknown]
  - Anaemia [Unknown]
  - Osteoporosis [Unknown]
  - Tendon rupture [Unknown]
  - Incisional drainage [Unknown]
  - Pyrexia [Recovered/Resolved]
  - Diarrhoea [Not Recovered/Not Resolved]
  - Decubitus ulcer [Unknown]
  - Subchondral insufficiency fracture [Unknown]
  - Impaired gastric emptying [Unknown]
  - Urinary retention [Unknown]

NARRATIVE: CASE EVENT DATE: 200907
